FAERS Safety Report 7715297-X (Version None)
Quarter: 2011Q3

REPORT INFORMATION
  Report Type: 
  Country: None (occurrence: None)
  Receive Date: 20110810
  Receipt Date: 20110601
  Transmission Date: 20111222
  Serious: No
  Sender: FDA-Public Use
  Company Number: 1000021278

PATIENT
  Age: 41 Year
  Sex: Female

DRUGS (9)
  1. B12 (CYANOCOBALAMIN-TANNIN COMPLEX) (CYANOCOBALAMIN-TANNIN COMPLEX) [Concomitant]
  2. HCG DIET SUPPLEMENT (HCG DIET SUPPLEMENT) (HCG DIET SUPPLEMENT) [Concomitant]
  3. VITAMIN D (VITAMIN D) (VITAMIN D) [Concomitant]
  4. CALCIUM (CALCIUM) (CALCIUM) [Concomitant]
  5. VITAMIN SUPPLEMENT NOS (VITAMIN SUPPLEMENT NOS) (VITAMIN SUPPLEMENT NO [Concomitant]
  6. EFFEXOR [Suspect]
     Dates: start: 20100101, end: 20110501
  7. SAVELLA [Suspect]
     Indication: FIBROMYALGIA
     Dosage: ORAL, 50 MG BID (50 MG, 2 IN 1 D), ORAL
     Route: 048
     Dates: start: 20110501, end: 20110501
  8. SAVELLA [Suspect]
     Indication: FIBROMYALGIA
     Dosage: ORAL, 50 MG BID (50 MG, 2 IN 1 D), ORAL
     Route: 048
     Dates: start: 20110501
  9. DOXEPIN HCL [Concomitant]

REACTIONS (4)
  - EUPHORIC MOOD [None]
  - DIZZINESS [None]
  - THINKING ABNORMAL [None]
  - BACK PAIN [None]
